FAERS Safety Report 9843710 (Version 1)
Quarter: 2014Q1

REPORT INFORMATION
  Report Type: Report from Study
  Country: US (occurrence: US)
  Receive Date: 20140125
  Receipt Date: 20140125
  Transmission Date: 20141002
  Serious: Yes (Other)
  Sender: FDA-Public Use
  Company Number: US-ABBVIE-13P-163-1184553-00

PATIENT
  Age: 20 Year
  Sex: Female
  Weight: 59.02 kg

DRUGS (5)
  1. HUMIRA [Suspect]
     Indication: PRODUCT USED FOR UNKNOWN INDICATION
     Dates: start: 2013
  2. SERTRALINE HYDROCHLORIDE [Suspect]
     Indication: ANXIETY
     Dates: start: 2013
  3. SERTRALINE HYDROCHLORIDE [Suspect]
     Dates: start: 20131124
  4. PREDNISONE [Suspect]
     Indication: CROHN^S DISEASE
  5. IMURAN [Concomitant]
     Indication: IMMUNOSUPPRESSANT DRUG THERAPY
     Dosage: DAILY

REACTIONS (9)
  - Disorientation [Unknown]
  - Mydriasis [Unknown]
  - Dizziness [Unknown]
  - Nausea [Unknown]
  - Weight increased [Unknown]
  - Obesity [Unknown]
  - Activities of daily living impaired [Unknown]
  - Gait disturbance [Unknown]
  - Impaired driving ability [Unknown]
